FAERS Safety Report 10296879 (Version 1)
Quarter: 2014Q3

REPORT INFORMATION
  Report Type: Spontaneous
  Country: US (occurrence: None)
  Receive Date: 20140708
  Receipt Date: 20140708
  Transmission Date: 20150326
  Serious: Yes (Hospitalization)
  Sender: FDA-Public Use
  Company Number: None

PATIENT
  Age: 58 Year
  Sex: Male
  Weight: 104.1 kg

DRUGS (1)
  1. NAPROXEN. [Suspect]
     Active Substance: NAPROXEN
     Indication: MIGRAINE
     Dosage: 375 MG, EVERY DAY, PO?
     Route: 048
     Dates: start: 20140619, end: 20140628

REACTIONS (10)
  - Vertigo [None]
  - Abdominal pain upper [None]
  - Hypoaesthesia [None]
  - Balance disorder [None]
  - Haematemesis [None]
  - Headache [None]
  - Gastric haemorrhage [None]
  - Vision blurred [None]
  - Hemiparesis [None]
  - Dysarthria [None]

NARRATIVE: CASE EVENT DATE: 20140628
